FAERS Safety Report 5712461-6 (Version None)
Quarter: 2008Q2

REPORT INFORMATION
  Report Type: 
  Country: None (occurrence: None)
  Receive Date: 20080422
  Receipt Date: 20080418
  Transmission Date: 20081010
  Serious: Yes (Other)
  Sender: FDA-Public Use
  Company Number: CN-BRISTOL-MYERS SQUIBB COMPANY-14149967

PATIENT
  Age: 8 Decade
  Sex: Male
  Weight: 60 kg

DRUGS (2)
  1. IRBESARTAN [Suspect]
     Indication: HYPERTENSION
     Dosage: 150MG QD 04 UNTIL JAN07,75MG QD IN JAN08;150MG QD IN FEB08;75MG QD  FEB'08 + 09MAR08 UNTIL 20MAR08
     Route: 048
     Dates: start: 20050920, end: 20080302
  2. AMLODIPINE [Concomitant]
     Indication: HYPERTENSION
     Route: 048
     Dates: start: 20070220

REACTIONS (1)
  - THROMBOCYTOPENIA [None]
